FAERS Safety Report 6076524-0 (Version None)
Quarter: 2009Q1

REPORT INFORMATION
  Report Type: 
  Country: None (occurrence: None)
  Receive Date: 20090211
  Receipt Date: 20090130
  Transmission Date: 20090719
  Serious: Yes (Hospitalization, Other)
  Sender: FDA-Public Use
  Company Number: 231146K09USA

PATIENT
  Age: 33 Year
  Sex: Male

DRUGS (1)
  1. REBIF [Suspect]
     Indication: MULTIPLE SCLEROSIS
     Dosage: 44 MCG,3 IN 1 WEEKS,SUBCUTANEOUS
     Route: 058
     Dates: start: 20080926

REACTIONS (3)
  - CHOLELITHIASIS [None]
  - PNEUMONIA [None]
  - URINARY TRACT INFECTION [None]
